FAERS Safety Report 7676698-1 (Version None)
Quarter: 2011Q3

REPORT INFORMATION
  Report Type: 
  Country: None (occurrence: None)
  Receive Date: 20110809
  Receipt Date: 20110809
  Transmission Date: 20111222
  Serious: Yes (Life-Threatening, Hospitalization)
  Sender: FDA-Public Use
  Company Number: None

PATIENT
  Age: 16 Year
  Sex: Female
  Weight: 69.2 kg

DRUGS (1)
  1. YAZ [Suspect]
     Indication: ACNE
     Dosage: YAZ 1 TAB DAILY BY MOUTH (047)
     Route: 048

REACTIONS (2)
  - VENOUS THROMBOSIS [None]
  - TRANSVERSE SINUS THROMBOSIS [None]
